FAERS Safety Report 13553123 (Version 2)
Quarter: 2018Q2

REPORT INFORMATION
  Report Type: Spontaneous
  Country: US (occurrence: US)
  Receive Date: 20170517
  Receipt Date: 20180505
  Transmission Date: 20180711
  Serious: Yes (Life-Threatening, Other)
  Sender: FDA-Public Use
  Company Number: US-AUROBINDO-AUR-APL-2017-33961

PATIENT
  Age: 55 Year
  Sex: Male

DRUGS (16)
  1. SUXAMETHONIUM [Concomitant]
     Active Substance: SUCCINYLCHOLINE
     Indication: ANAESTHESIA
     Dosage: ()
  2. ETOMIDATE. [Concomitant]
     Active Substance: ETOMIDATE
     Dosage: ()
     Route: 065
  3. ETOMIDATE. [Concomitant]
     Active Substance: ETOMIDATE
     Dosage: ()
     Route: 042
  4. AZITHROMYCIN ANHYDROUS. [Concomitant]
     Active Substance: AZITHROMYCIN ANHYDROUS
     Indication: PNEUMONIA
     Dosage: ()
  5. FLUCONAZOLE. [Concomitant]
     Active Substance: FLUCONAZOLE
     Dosage: ()
  6. LIDOCAINE. [Suspect]
     Active Substance: LIDOCAINE
     Dosage: ENDOBRONCHIAL
     Route: 061
  7. SUCCINYLCHOLINE [Concomitant]
     Active Substance: SUCCINYLCHOLINE
     Indication: ANAESTHESIA
     Route: 065
  8. SUCCINYLCHOLINE [Concomitant]
     Active Substance: SUCCINYLCHOLINE
     Dosage: ()
     Route: 042
  9. CEFEPIME [Concomitant]
     Active Substance: CEFEPIME HYDROCHLORIDE
     Indication: PNEUMONIA
     Dosage: ()
  10. LIDOCAINE. [Suspect]
     Active Substance: LIDOCAINE
     Indication: ANAESTHESIA
     Dosage: ENDOBRONCHIAL
     Route: 061
  11. ETOMIDATE. [Concomitant]
     Active Substance: ETOMIDATE
     Indication: ANAESTHESIA
     Route: 065
  12. ALLOPURINOL. [Concomitant]
     Active Substance: ALLOPURINOL
     Dosage: ()
  13. LIDOCAINE 4% [Suspect]
     Active Substance: LIDOCAINE
     Dosage: TOPICAL ENDOBRONCHIAL, GEL APPLIED WITH TONGUE BLADE ()
     Route: 061
  14. CARFILZOMIB [Concomitant]
     Active Substance: CARFILZOMIB
     Indication: PLASMA CELL MYELOMA
     Dosage: ()
  15. PANTOPRAZOLE [Concomitant]
     Active Substance: PANTOPRAZOLE
     Dosage: ()
  16. ACYCLOVIR. [Concomitant]
     Active Substance: ACYCLOVIR
     Dosage: ()

REACTIONS (1)
  - Methaemoglobinaemia [Recovered/Resolved]
